FAERS Safety Report 4748041-9 (Version None)
Quarter: 2005Q3

REPORT INFORMATION
  Report Type: 
  Country: None (occurrence: None)
  Receive Date: 20050818
  Receipt Date: 20050725
  Transmission Date: 20060218
  Serious: Yes (Hospitalization, Other)
  Sender: FDA-Public Use
  Company Number: PHBS2005JP10911

PATIENT
  Age: 47 Year
  Sex: Female

DRUGS (3)
  1. GLEEVEC [Suspect]
     Indication: CHRONIC MYELOID LEUKAEMIA
     Dosage: 20 DF, ONCE/SINGLE
     Route: 048
     Dates: start: 20050725, end: 20050725
  2. HALCION [Suspect]
     Dosage: 28 DF, ONCE/SINGLE
     Route: 048
     Dates: start: 20050725, end: 20050725
  3. LENDORMIN [Suspect]
     Dosage: 50 DF, ONCE/SINGLE
     Route: 048
     Dates: start: 20050725, end: 20050725

REACTIONS (4)
  - BLOOD CREATINE PHOSPHOKINASE INCREASED [None]
  - DEPRESSION [None]
  - MULTIPLE DRUG OVERDOSE [None]
  - SUICIDE ATTEMPT [None]
